FAERS Safety Report 7315258-9 (Version None)
Quarter: 2011Q1

REPORT INFORMATION
  Report Type: 
  Country: None (occurrence: None)
  Receive Date: 20110225
  Receipt Date: 20110216
  Transmission Date: 20110831
  Serious: Yes (Other)
  Sender: FDA-Public Use
  Company Number: FR-EISAI INC-E7273-00213-SPO-FR

PATIENT
  Sex: Male

DRUGS (2)
  1. TARGRETIN [Suspect]
     Indication: MYCOSIS FUNGOIDES
     Dosage: UNKNOWN
     Route: 048
  2. INTERFERON [Concomitant]
     Route: 065

REACTIONS (1)
  - THYROID CANCER [None]
